FAERS Safety Report 17991913 (Version 3)
Quarter: 2020Q3

REPORT INFORMATION
  Report Type: Report from Study
  Country: PK (occurrence: PK)
  Receive Date: 20200707
  Receipt Date: 20200713
  Transmission Date: 20201103
  Serious: Yes (Life-Threatening)
  Sender: FDA-Public Use
  Company Number: NVSC2020PK189975

PATIENT
  Age: 33 Year
  Sex: Female

DRUGS (4)
  1. MYFORTIC [Suspect]
     Active Substance: MYCOPHENOLATE SODIUM
     Dosage: 180 MG, TID
     Route: 048
  2. MYFORTIC [Suspect]
     Active Substance: MYCOPHENOLATE SODIUM
     Dosage: 180 MG, TID
     Route: 048
  3. MYFORTIC [Suspect]
     Active Substance: MYCOPHENOLATE SODIUM
     Dosage: 360 MG, BID
     Route: 048
  4. MYFORTIC [Suspect]
     Active Substance: MYCOPHENOLATE SODIUM
     Indication: TRANSPLANT
     Dosage: 360 MG, BID
     Route: 048
     Dates: start: 201708, end: 201710

REACTIONS (5)
  - Normal newborn [Unknown]
  - Maternal exposure during pregnancy [Unknown]
  - Abdominal discomfort [Not Recovered/Not Resolved]
  - Delivery [Unknown]
  - Blood urine present [Not Recovered/Not Resolved]

NARRATIVE: CASE EVENT DATE: 201708
